FAERS Safety Report 8536018-7 (Version None)
Quarter: 2012Q3

REPORT INFORMATION
  Report Type: 
  Country: None (occurrence: None)
  Receive Date: 20120725
  Receipt Date: 20120717
  Transmission Date: 20120928
  Serious: Yes (Hospitalization, Other)
  Sender: FDA-Public Use
  Company Number: CH-NOVOPROD-354518

PATIENT
  Age: 71 Year
  Sex: Female
  Weight: 92 kg

DRUGS (7)
  1. VICTOZA [Suspect]
     Indication: TYPE 2 DIABETES MELLITUS
     Dosage: 0.6 MG, QD
     Route: 058
     Dates: start: 20110126
  2. IRBESARTAN AND HYDROCHLOROTHIAZIDE [Concomitant]
     Dosage: 150 MG, QD
     Route: 048
  3. HUMALOG [Concomitant]
     Dosage: 26-34 U PER MEAL
     Route: 058
  4. LANTUS [Concomitant]
     Dosage: 60 U, QD
     Route: 058
  5. VICTOZA [Suspect]
     Dosage: 0.6 MG, QD
     Route: 058
     Dates: end: 20110211
  6. LERCANIDIPINE [Concomitant]
     Dosage: 5 MG, QD
     Route: 048
  7. VICTOZA [Suspect]
     Dosage: 1.2 MG, QD
     Route: 065
     Dates: start: 20110205

REACTIONS (4)
  - VITREOUS HAEMORRHAGE [None]
  - VOMITING [None]
  - NAUSEA [None]
  - ABDOMINAL PAIN [None]
